FAERS Safety Report 24423891 (Version 2)
Quarter: 2024Q4

REPORT INFORMATION
  Report Type: Spontaneous
  Country: US (occurrence: US)
  Receive Date: 20241010
  Receipt Date: 20241110
  Transmission Date: 20250115
  Serious: No
  Sender: SANOFI AVENTIS
  Company Number: US-SA-2024SA291506

PATIENT
  Age: 71 Year
  Sex: Male
  Weight: 121.11 kg

DRUGS (2)
  1. SARCLISA [Suspect]
     Active Substance: ISATUXIMAB-IRFC
     Indication: Plasma cell myeloma
     Dosage: 1000 MG, Q4W
     Route: 042
  2. LOVENOX [Concomitant]
     Active Substance: ENOXAPARIN SODIUM
     Dosage: 120 MG, BID

REACTIONS (6)
  - Speech disorder [Unknown]
  - Asthma [Unknown]
  - Arthralgia [Unknown]
  - White blood cell count decreased [Unknown]
  - Bronchitis [Unknown]
  - Dyspnoea [Unknown]

NARRATIVE: CASE EVENT DATE: 20240901
